FAERS Safety Report 7962146-0 (Version None)
Quarter: 2011Q4

REPORT INFORMATION
  Report Type: 
  Country: None (occurrence: None)
  Receive Date: 20111207
  Receipt Date: 20111128
  Transmission Date: 20120403
  Serious: Yes (Hospitalization)
  Sender: FDA-Public Use
  Company Number: DE-TEVA-311027GER

PATIENT
  Age: 71 Year
  Sex: Male

DRUGS (8)
  1. ZOLPIDEM [Concomitant]
     Route: 048
     Dates: start: 20111030
  2. BERODUAL [Concomitant]
     Dosage: 6 DOSAGE FORMS;
     Route: 048
  3. RAMIPRIL [Concomitant]
     Route: 048
  4. FLUANXOL DEPOT [Concomitant]
     Route: 030
     Dates: start: 20110330
  5. THEOPHYLLINE [Suspect]
     Indication: CHRONIC OBSTRUCTIVE PULMONARY DISEASE
     Route: 048
  6. CITALOPRAM HYDROBROMIDE [Suspect]
     Indication: SCHIZOAFFECTIVE DISORDER
     Route: 048
     Dates: start: 20110317, end: 20110330
  7. FLUANXOL DEPOT [Concomitant]
     Route: 030
     Dates: start: 19910101, end: 20110329
  8. SYMBICORT [Concomitant]
     Dosage: 6 DOSAGE FORMS;
     Route: 048

REACTIONS (2)
  - HALLUCINATION [None]
  - DELUSION [None]
